FAERS Safety Report 10386909 (Version 1)
Quarter: 2014Q3

REPORT INFORMATION
  Report Type: Spontaneous
  Country: US (occurrence: US)
  Receive Date: 20140815
  Receipt Date: 20140815
  Transmission Date: 20150326
  Serious: No
  Sender: FDA-Public Use
  Company Number: US-PFIZER INC-2014228059

PATIENT
  Age: 74 Year
  Sex: Female
  Weight: 57.14 kg

DRUGS (2)
  1. NICOTROL [Suspect]
     Active Substance: NICOTINE
     Indication: SMOKING CESSATION THERAPY
     Dosage: UNK
     Route: 045
     Dates: start: 201408
  2. NICOTINE. [Suspect]
     Active Substance: NICOTINE
     Dosage: 40 MG, UNK
     Route: 062

REACTIONS (1)
  - Blood pressure abnormal [Unknown]

NARRATIVE: CASE EVENT DATE: 201408
